FAERS Safety Report 23784251 (Version 1)
Quarter: 2024Q2

REPORT INFORMATION
  Report Type: Spontaneous
  Country: US (occurrence: None)
  Receive Date: 20240424
  Receipt Date: 20240424
  Transmission Date: 20240716
  Serious: No
  Sender: FDA-Public Use
  Company Number: None

PATIENT
  Sex: Female

DRUGS (3)
  1. XOLAIR [Suspect]
     Active Substance: OMALIZUMAB
     Dosage: OTHER QUANTITY : 3 SYRINGES;?OTHER FREQUENCY : EVERY 28 DAYS;?
     Route: 058
     Dates: start: 20191203
  2. BOTOX [Concomitant]
     Active Substance: ONABOTULINUMTOXINA
  3. PROLIA [Concomitant]
     Active Substance: DENOSUMAB

REACTIONS (1)
  - Knee arthroplasty [None]
